FAERS Safety Report 6206095-7 (Version None)
Quarter: 2009Q2

REPORT INFORMATION
  Report Type: 
  Country: None (occurrence: None)
  Receive Date: 20090528
  Receipt Date: 20090526
  Transmission Date: 20091009
  Serious: Yes (Hospitalization)
  Sender: FDA-Public Use
  Company Number: AU-BRISTOL-MYERS SQUIBB COMPANY-14637003

PATIENT
  Age: 87 Year
  Sex: Female

DRUGS (7)
  1. AVAPRO [Suspect]
     Route: 048
     Dates: start: 20070715
  2. CALTRATE [Concomitant]
  3. EFFEXOR XR [Concomitant]
  4. MAGMIN [Concomitant]
  5. NEXIUM [Concomitant]
  6. OSTELIN [Concomitant]
     Dosage: 1DF-1000 UNITS NOT MENTIONED
  7. QUETIAPINE FUMARATE [Concomitant]

REACTIONS (3)
  - DERMATITIS [None]
  - PHOTOSENSITIVITY REACTION [None]
  - PRURITUS [None]
